FAERS Safety Report 7211011-5 (Version None)
Quarter: 2011Q1

REPORT INFORMATION
  Report Type: 
  Country: None (occurrence: None)
  Receive Date: 20110105
  Receipt Date: 20101223
  Transmission Date: 20110831
  Serious: Yes (Disabling, Congenital Anomaly)
  Sender: FDA-Public Use
  Company Number: B0691940A

PATIENT
  Age: 67 Year
  Sex: Male
  Weight: 80.3 kg

DRUGS (1)
  1. MARAVIROC [Suspect]
     Indication: HIV INFECTION
     Dosage: 600MG TWICE PER DAY
     Dates: start: 20090316

REACTIONS (1)
  - PANCREATIC CARCINOMA RECURRENT [None]
